FAERS Safety Report 23030334 (Version 1)
Quarter: 2023Q4

REPORT INFORMATION
  Report Type: Report from Study
  Country: BR (occurrence: BR)
  Receive Date: 20231005
  Receipt Date: 20231005
  Transmission Date: 20240110
  Serious: Yes (Hospitalization)
  Sender: FDA-Public Use
  Company Number: BR-JNJFOC-20230945713

PATIENT
  Age: 15 Year
  Sex: Male
  Weight: 50 kg

DRUGS (2)
  1. INFLIXIMAB [Suspect]
     Active Substance: INFLIXIMAB
     Indication: Crohn^s disease
     Dosage: 06-SEP-2023
     Route: 041
     Dates: start: 20230913
  2. AZATHIOPRINE [Suspect]
     Active Substance: AZATHIOPRINE
     Indication: Crohn^s disease
     Dosage: EVERY 12 HOURS
     Route: 048
     Dates: end: 20230923

REACTIONS (1)
  - Helicobacter infection [Recovering/Resolving]

NARRATIVE: CASE EVENT DATE: 20230919
